FAERS Safety Report 6786118-7 (Version None)
Quarter: 2010Q2

REPORT INFORMATION
  Report Type: 
  Country: None (occurrence: None)
  Receive Date: 20100623
  Receipt Date: 20100611
  Transmission Date: 20101027
  Serious: Yes (Hospitalization)
  Sender: FDA-Public Use
  Company Number: DE-PFIZER INC-2010052112

PATIENT
  Age: 59 Year
  Sex: Male
  Weight: 52 kg

DRUGS (14)
  1. BLINDED *NO SUBJECT DRUG [Suspect]
     Indication: PROSTATE CANCER
     Dosage: 37.5 MG, 1X/DAY
     Route: 048
     Dates: start: 20091222, end: 20100423
  2. BLINDED *PLACEBO [Suspect]
     Indication: PROSTATE CANCER
     Dosage: 37.5 MG, 1X/DAY
     Route: 048
     Dates: start: 20091222, end: 20100423
  3. SUNITINIB MALATE [Suspect]
     Indication: PROSTATE CANCER
     Dosage: 37.5 MG, 1X/DAY
     Route: 048
     Dates: start: 20091222, end: 20100423
  4. *PREDNISONE [Suspect]
     Indication: PROSTATE CANCER
     Dosage: 5 MG, 2X/DAY
     Route: 048
     Dates: start: 20091222
  5. TRAMABETA [Suspect]
     Indication: BONE PAIN
     Dosage: 100 MG, 2X/DAY
     Route: 048
     Dates: start: 20091215, end: 20100423
  6. NOVALGIN [Concomitant]
     Indication: BONE PAIN
     Dosage: 30 GTT, 3X/DAY
     Route: 048
     Dates: start: 20091207
  7. IBUPROFEN [Concomitant]
     Indication: BONE PAIN
     Dosage: 400 MG, 2X/DAY
     Route: 048
     Dates: start: 20091203, end: 20091207
  8. METOCLOPRAMIDE [Concomitant]
     Indication: NAUSEA
     Dosage: 10 GTT, AS NEEDED
     Route: 048
     Dates: start: 20091215
  9. FERRO SANOL [Concomitant]
     Indication: ANAEMIA
     Dosage: 1 DF, 1X/DAY
     Route: 048
  10. PHARMATONE [Concomitant]
     Indication: FATIGUE
     Dosage: 1 DF, 1X/DAY
     Route: 048
     Dates: start: 20090101
  11. SANDOCAL-D [Concomitant]
     Indication: METASTASES TO BONE
     Dosage: 1 DF, 1X/DAY
     Route: 048
     Dates: start: 20100105
  12. DEXPANTHENOL [Concomitant]
     Indication: PALMAR-PLANTAR ERYTHRODYSAESTHESIA SYNDROME
     Dosage: FIVE TIMES DAILY
     Route: 061
     Dates: start: 20100119
  13. EUCERIN [Concomitant]
     Indication: PALMAR-PLANTAR ERYTHRODYSAESTHESIA SYNDROME
     Dosage: FIVE TIMES DAILY
     Route: 061
     Dates: start: 20100119
  14. CLINDAMYCIN [Concomitant]
     Indication: INFLAMMATION
     Dosage: UNK
     Route: 048
     Dates: start: 20100318, end: 20100323

REACTIONS (4)
  - DEHYDRATION [None]
  - NAUSEA [None]
  - PLEURAL EFFUSION [None]
  - PROTHROMBIN TIME PROLONGED [None]
